FAERS Safety Report 9744102 (Version 1)
Quarter: 2013Q4

REPORT INFORMATION
  Report Type: Spontaneous
  Country: FR (occurrence: FR)
  Receive Date: 20131210
  Receipt Date: 20131210
  Transmission Date: 20140711
  Serious: Yes (Death, Other)
  Sender: FDA-Public Use
  Company Number: FR-PFIZER INC-2013351571

PATIENT
  Age: 90 Year
  Sex: Female

DRUGS (7)
  1. CORDARONE [Suspect]
     Dosage: 200 MG, 1X/DAY
     Route: 048
     Dates: start: 20130810
  2. PRADAXA [Interacting]
     Indication: ATRIAL FIBRILLATION
     Dosage: UNK
     Route: 048
     Dates: end: 20130809
  3. PRADAXA [Interacting]
     Dosage: 110 MG, 2X/DAY
     Route: 048
     Dates: start: 20130812, end: 20130902
  4. DIFFU K [Concomitant]
     Dosage: UNK
  5. LASILIX [Concomitant]
     Dosage: UNK
  6. BISOPROLOL [Concomitant]
     Dosage: UNK
  7. PERINDOPRIL [Concomitant]
     Dosage: UNK

REACTIONS (7)
  - Drug interaction [Fatal]
  - Overdose [Fatal]
  - Gastrointestinal haemorrhage [Fatal]
  - Mouth haemorrhage [Fatal]
  - Skin haemorrhage [Fatal]
  - Haemorrhagic anaemia [Unknown]
  - Blood creatinine increased [Unknown]
